FAERS Safety Report 4807757-6 (Version None)
Quarter: 2005Q4

REPORT INFORMATION
  Report Type: 
  Country: None (occurrence: None)
  Receive Date: 20051019
  Receipt Date: 20050905
  Transmission Date: 20060501
  Serious: Yes (Life-Threatening)
  Sender: FDA-Public Use
  Company Number: 2005RR-00773

PATIENT
  Age: 76 Year
  Sex: Female

DRUGS (4)
  1. METFORMIN HYDROCHLORIDE 500MG(METFORMIN HYDROCHLORIDE) TABLET, 500MG [Suspect]
     Indication: DIABETES MELLITUS
     Dosage: 500 MG, TID, ORAL
     Route: 048
     Dates: start: 20050807, end: 20050808
  2. PEPTAC LIQUID [Concomitant]
  3. AMLODIPINE [Concomitant]
  4. BENDROFLUAZIDE TABLET 5MG BP (BENDROFLUMETHAZIDE) [Concomitant]

REACTIONS (1)
  - ANGIONEUROTIC OEDEMA [None]
